FAERS Safety Report 24150776 (Version 1)
Quarter: 2024Q3

REPORT INFORMATION
  Report Type: Spontaneous
  Country: UY (occurrence: UY)
  Receive Date: 20240730
  Receipt Date: 20240730
  Transmission Date: 20241016
  Serious: Yes (Other)
  Sender: ROCHE
  Company Number: UY-ROCHE-10000006118

PATIENT
  Age: 65 Year
  Sex: Male

DRUGS (2)
  1. COTELLIC [Suspect]
     Active Substance: COBIMETINIB
     Indication: Malignant melanoma stage IV
     Dosage: 40 MG VIA ORAL DAY D1 TO D 21
     Route: 048
     Dates: start: 202401
  2. ZELBORAF [Suspect]
     Active Substance: VEMURAFENIB
     Indication: Malignant melanoma stage IV
     Route: 048
     Dates: start: 202401

REACTIONS (8)
  - Blood alkaline phosphatase increased [Recovering/Resolving]
  - Gamma-glutamyltransferase increased [Recovering/Resolving]
  - Alanine aminotransferase increased [Recovering/Resolving]
  - Blood bilirubin increased [Recovering/Resolving]
  - Bilirubin conjugated increased [Recovering/Resolving]
  - Blood bilirubin unconjugated increased [Recovering/Resolving]
  - Prothrombin time shortened [Recovering/Resolving]
  - Bile duct stenosis [Unknown]

NARRATIVE: CASE EVENT DATE: 20240201
